FAERS Safety Report 5606360-8 (Version None)
Quarter: 2008Q1

REPORT INFORMATION
  Report Type: 
  Country: None (occurrence: None)
  Receive Date: 20080129
  Receipt Date: 20070726
  Transmission Date: 20080703
  Serious: No
  Sender: FDA-Public Use
  Company Number: A0666535A

PATIENT
  Age: 57 Year
  Sex: Male

DRUGS (2)
  1. WELLBUTRIN [Suspect]
     Indication: DEPRESSION
     Dosage: 225MG TWICE PER DAY
     Route: 048
     Dates: start: 19990101
  2. ZANTAC [Concomitant]

REACTIONS (2)
  - DEPRESSION [None]
  - OVERDOSE [None]
